FAERS Safety Report 24112724 (Version 1)
Quarter: 2024Q3

REPORT INFORMATION
  Report Type: Spontaneous
  Country: AU (occurrence: AU)
  Receive Date: 20240719
  Receipt Date: 20240719
  Transmission Date: 20241016
  Serious: Yes (Hospitalization, Other)
  Sender: MERCK
  Company Number: AU-AstraZeneca-2023A210457

PATIENT
  Age: 43 Year
  Sex: Female

DRUGS (2)
  1. TEMOZOLOMIDE [Suspect]
     Active Substance: TEMOZOLOMIDE
     Indication: Uterine leiomyosarcoma
     Dosage: 100 MILLIGRAM, QD
     Route: 048
     Dates: end: 20230914
  2. OLAPARIB [Suspect]
     Active Substance: OLAPARIB
     Indication: Uterine leiomyosarcoma
     Dosage: 100 MILLIGRAM, Q12H
     Route: 048
     Dates: start: 20230815

REACTIONS (3)
  - Thrombocytopenic purpura [Not Recovered/Not Resolved]
  - Febrile neutropenia [Not Recovered/Not Resolved]
  - Anaemia [Not Recovered/Not Resolved]

NARRATIVE: CASE EVENT DATE: 20230913
